FAERS Safety Report 9331349 (Version 1)
Quarter: 2013Q2

REPORT INFORMATION
  Report Type: Spontaneous
  Country: US (occurrence: US)
  Receive Date: 20130605
  Receipt Date: 20130605
  Transmission Date: 20140414
  Serious: No
  Sender: FDA-Public Use
  Company Number: US-TARO-2013P1001086

PATIENT
  Sex: Female
  Weight: 54.43 kg

DRUGS (2)
  1. CETIRIZINE HCL ORAL SOLUTION ALLERGY 1 MG/ML OTC [Suspect]
     Indication: RHINORRHOEA
     Route: 048
     Dates: start: 20130117, end: 20130117
  2. CETIRIZINE HCL ORAL SOLUTION ALLERGY 1 MG/ML OTC [Suspect]
     Indication: NASOPHARYNGITIS
     Route: 048
     Dates: start: 20130117, end: 20130117

REACTIONS (4)
  - Somnolence [Recovered/Resolved]
  - Nasal dryness [Recovered/Resolved]
  - Rhinalgia [Recovered/Resolved]
  - Drug effect increased [Unknown]
